FAERS Safety Report 6431445-6 (Version None)
Quarter: 2009Q4

REPORT INFORMATION
  Report Type: 
  Country: None (occurrence: None)
  Receive Date: 20091105
  Receipt Date: 20091105
  Transmission Date: 20100525
  Serious: Yes (Other)
  Sender: FDA-Public Use
  Company Number: None

PATIENT
  Age: 66 Year
  Sex: Female
  Weight: 74.8435 kg

DRUGS (4)
  1. SUMATRIPTAN SUCCINATE [Suspect]
     Indication: MIGRAINE
     Dosage: 1 T. AS NEEDED MOUTH
     Route: 048
     Dates: start: 20090901
  2. SUMATRIPTAN SUCCINATE [Suspect]
     Indication: MIGRAINE
     Dosage: 1 T. AS NEEDED MOUTH
     Route: 048
     Dates: start: 20091001
  3. SUMATRIPTAN SUCCINATE [Suspect]
     Indication: MIGRAINE
     Dosage: 1 T. AS NEEDED MOUTH
     Route: 048
     Dates: start: 20090801
  4. SUMATRIPTAN SUCCINATE [Suspect]
     Indication: MIGRAINE
     Dosage: 1 T. AS NEEDED MOUTH
     Route: 048
     Dates: start: 20090901

REACTIONS (5)
  - FLATULENCE [None]
  - HALLUCINATION [None]
  - HEADACHE [None]
  - NIGHTMARE [None]
  - POOR QUALITY SLEEP [None]
